FAERS Safety Report 11172415 (Version 1)
Quarter: 2015Q2

REPORT INFORMATION
  Report Type: Spontaneous
  Country: US (occurrence: US)
  Receive Date: 20150608
  Receipt Date: 20150608
  Transmission Date: 20150821
  Serious: No
  Sender: FDA-Public Use
  Company Number: US-AMGEN-USASP2014056920

PATIENT
  Age: 86 Year
  Sex: Female

DRUGS (1)
  1. PROCRIT [Suspect]
     Active Substance: ERYTHROPOIETIN
     Indication: ANAEMIA
     Dosage: 20,000 UNITS, EVERY WEEK
     Route: 058
     Dates: start: 20140724

REACTIONS (3)
  - Confusional state [Unknown]
  - Asthenia [Unknown]
  - Fatigue [Unknown]
